FAERS Safety Report 4558125-6 (Version None)
Quarter: 2005Q1

REPORT INFORMATION
  Report Type: 
  Country: None (occurrence: None)
  Receive Date: 20050121
  Receipt Date: 20041220
  Transmission Date: 20050727
  Serious: Yes (Hospitalization)
  Sender: FDA-Public Use
  Company Number: 200419743US

PATIENT
  Sex: Female
  Weight: 111.3 kg

DRUGS (8)
  1. PENLAC [Suspect]
     Indication: ONYCHOMYCOSIS
     Dosage: DOSE: UNK
     Dates: start: 20030101
  2. LISINOPRIL [Concomitant]
     Indication: BLOOD PRESSURE INCREASED
  3. NADOLOL [Concomitant]
     Indication: CARDIAC DISORDER
  4. ZOLOFT [Concomitant]
     Indication: DEPRESSION
     Dates: start: 20030128
  5. ASPIRIN [Concomitant]
     Indication: COAGULOPATHY
     Dosage: DOSE: 2 TABLETS
  6. ZOCOR [Concomitant]
     Indication: BLOOD CHOLESTEROL INCREASED
  7. GABITRIL [Concomitant]
     Indication: CONVULSION
     Dosage: DOSE: UNK
  8. CALCIUM GLUCONATE [Concomitant]
     Dosage: DOSE: 1 TABLETS

REACTIONS (3)
  - APPLICATION SITE DISCOLOURATION [None]
  - NAIL DISCOLOURATION [None]
  - NAIL DISORDER [None]
